FAERS Safety Report 4460003-8 (Version None)
Quarter: 2004Q3

REPORT INFORMATION
  Report Type: 
  Country: None (occurrence: None)
  Receive Date: 20040928
  Receipt Date: 20030924
  Transmission Date: 20050211
  Serious: No
  Sender: FDA-Public Use
  Company Number: US-GLAXOSMITHKLINE-A0427327A

PATIENT
  Age: 74 Year
  Sex: Male

DRUGS (3)
  1. SEREVENT [Suspect]
     Indication: ASTHMA
     Dosage: 1PUFF AT NIGHT
     Route: 055
  2. ALBUTEROL [Concomitant]
  3. LEVOBUNOLOL HCL [Concomitant]

REACTIONS (3)
  - ASTHMA [None]
  - DYSPNOEA EXACERBATED [None]
  - PHARMACEUTICAL PRODUCT COMPLAINT [None]
